FAERS Safety Report 5747526-6 (Version None)
Quarter: 2008Q2

REPORT INFORMATION
  Report Type: 
  Country: None (occurrence: None)
  Receive Date: 20080523
  Receipt Date: 20080514
  Transmission Date: 20081010
  Serious: Yes (Other)
  Sender: FDA-Public Use
  Company Number: AT-WYE-G01537108

PATIENT
  Weight: 90 kg

DRUGS (1)
  1. PIPRIL [Suspect]
     Indication: PSEUDOMONAS INFECTION
     Dosage: 4 G FREQUENCY UNKNOWN

REACTIONS (7)
  - BLOOD PRESSURE DECREASED [None]
  - CIRCULATORY COLLAPSE [None]
  - PAIN [None]
  - PLATELET COUNT DECREASED [None]
  - PYREXIA [None]
  - RESPIRATORY FAILURE [None]
  - TYPE II HYPERSENSITIVITY [None]
